FAERS Safety Report 15077133 (Version 1)
Quarter: 2018Q2

REPORT INFORMATION
  Report Type: Report from Study
  Country: KR (occurrence: KR)
  Receive Date: 20180627
  Receipt Date: 20180627
  Transmission Date: 20180711
  Serious: Yes (Other)
  Sender: FDA-Public Use
  Company Number: KR-MYLANLABS-2018M1045776

PATIENT
  Age: 38 Year
  Sex: Male

DRUGS (3)
  1. CYCLOSPORIN [Suspect]
     Active Substance: CYCLOSPORINE
     Indication: IMMUNOSUPPRESSANT DRUG THERAPY
     Dosage: ACCUMULATIVE DOSE WAS 436945MG AND AVERAGE DOSE WAS 78 MG/DAY
     Route: 065
  2. MYCOPHENOLATE MOFETIL. [Suspect]
     Active Substance: MYCOPHENOLATE MOFETIL
     Indication: IMMUNOSUPPRESSANT DRUG THERAPY
     Dosage: ACCUMULATIVE DOSE WAS 5413815MG AND AVERAGE DOSE WAS 1200.7 MG/DAY
     Route: 065
  3. BASILIXIMAB [Suspect]
     Active Substance: BASILIXIMAB
     Indication: IMMUNOSUPPRESSANT DRUG THERAPY
     Dosage: ONE WEEK OF DAILY IV BASILIXIMAB
     Route: 042

REACTIONS (2)
  - Glottis carcinoma [Recovered/Resolved]
  - Squamous cell carcinoma [Recovered/Resolved]
